FAERS Safety Report 20152332 (Version 6)
Quarter: 2025Q1

REPORT INFORMATION
  Report Type: Spontaneous
  Country: CA (occurrence: CA)
  Receive Date: 20211206
  Receipt Date: 20250321
  Transmission Date: 20250409
  Serious: Yes (Death, Other)
  Sender: PFIZER
  Company Number: CA-PFIZER INC-202101655103

PATIENT
  Age: 78 Year
  Sex: Male

DRUGS (16)
  1. VYNDAQEL [Suspect]
     Active Substance: TAFAMIDIS MEGLUMINE
     Indication: Cardiac amyloidosis
     Dosage: 80 MG, 1X/DAY
     Route: 048
     Dates: start: 20210827
  2. ALLOPURINOL [Concomitant]
     Active Substance: ALLOPURINOL
  3. APIXABAN [Concomitant]
     Active Substance: APIXABAN
     Indication: Atrial fibrillation
  4. FERROUS GLUCONATE [Concomitant]
     Active Substance: FERROUS GLUCONATE
  5. FOLIC ACID [Concomitant]
     Active Substance: FOLIC ACID
  6. FUROSEMIDE [Concomitant]
     Active Substance: FUROSEMIDE
  7. INFLIXIMAB [Concomitant]
     Active Substance: INFLIXIMAB
  8. METHOTREXATE [Concomitant]
     Active Substance: METHOTREXATE
  9. PANTOPRAZOLE [Concomitant]
     Active Substance: PANTOPRAZOLE
  10. POTASSIUM [Concomitant]
     Active Substance: POTASSIUM
  11. PREGABALIN [Concomitant]
     Active Substance: PREGABALIN
  12. ALBUTEROL [Concomitant]
     Active Substance: ALBUTEROL
  13. SPIRIVA [Concomitant]
     Active Substance: TIOTROPIUM BROMIDE MONOHYDRATE
  14. CYANOCOBALAMIN\FOLIC ACID [Concomitant]
     Active Substance: CYANOCOBALAMIN\FOLIC ACID
  15. VITAMIN D3 [Concomitant]
     Active Substance: CHOLECALCIFEROL
  16. VITAMIN B12 [Concomitant]
     Active Substance: CYANOCOBALAMIN

REACTIONS (21)
  - Death [Fatal]
  - Cardiac amyloidosis [Unknown]
  - Disease progression [Unknown]
  - Tricuspid valve incompetence [Unknown]
  - Left ventricular hypertrophy [Unknown]
  - Electrocardiogram ST-T segment abnormal [Unknown]
  - Cardiac failure [Unknown]
  - Mitral valve incompetence [Unknown]
  - Pulmonary hypertension [Unknown]
  - Aortic valve incompetence [Unknown]
  - Aortic dilatation [Unknown]
  - Dyspnoea exertional [Recovering/Resolving]
  - Oedema peripheral [Not Recovered/Not Resolved]
  - Asthenia [Unknown]
  - COVID-19 [Not Recovered/Not Resolved]
  - Cough [Unknown]
  - Right ventricular dilatation [Unknown]
  - Systolic dysfunction [Unknown]
  - Mitral valve calcification [Unknown]
  - Aortic valve sclerosis [Unknown]
  - Inferior vena cava dilatation [Unknown]

NARRATIVE: CASE EVENT DATE: 20210920
